FAERS Safety Report 9394771 (Version 2)
Quarter: 2013Q3

REPORT INFORMATION
  Report Type: Spontaneous
  Country: DE (occurrence: DE)
  Receive Date: 20130711
  Receipt Date: 20130808
  Transmission Date: 20140515
  Serious: Yes (Other)
  Sender: FDA-Public Use
  Company Number: DE-ROCHE-1246749

PATIENT
  Sex: Female

DRUGS (3)
  1. RITUXIMAB [Suspect]
     Indication: PSORIATIC ARTHROPATHY
     Route: 065
     Dates: start: 2012, end: 2012
  2. RITUXIMAB [Suspect]
     Indication: CASTLEMAN^S DISEASE
  3. RITUXIMAB [Suspect]
     Indication: OFF LABEL USE

REACTIONS (2)
  - Anosmia [Unknown]
  - Neuropathy peripheral [Unknown]
